FAERS Safety Report 7921636-7 (Version None)
Quarter: 2011Q4

REPORT INFORMATION
  Report Type: 
  Country: None (occurrence: None)
  Receive Date: 20111117
  Receipt Date: 20111109
  Transmission Date: 20120403
  Serious: Yes (Hospitalization)
  Sender: FDA-Public Use
  Company Number: JP-B.I. PHARMACEUTICALS,INC./RIDGEFIELD-2011-DE-06138GD

PATIENT
  Age: 66 Year
  Sex: Male

DRUGS (4)
  1. CARBAMAZEPINE [Concomitant]
     Indication: AGGRESSION
     Dosage: 600 MG
  2. LITHIUM CARBONATE [Suspect]
     Indication: BIPOLAR DISORDER
     Dosage: 600 MG
  3. TEMISARTAN [Suspect]
     Indication: HYPERTENSION
     Dosage: 40 MG
     Route: 048
     Dates: start: 20110214, end: 20110322
  4. HALOPERIDOL [Concomitant]

REACTIONS (5)
  - RENAL IMPAIRMENT [None]
  - TOXICITY TO VARIOUS AGENTS [None]
  - TREMOR [None]
  - APPETITE DISORDER [None]
  - WEIGHT DECREASED [None]
